FAERS Safety Report 23595970 (Version 6)
Quarter: 2024Q4

REPORT INFORMATION
  Report Type: Spontaneous
  Country: JP (occurrence: JP)
  Receive Date: 20240305
  Receipt Date: 20241126
  Transmission Date: 20250115
  Serious: Yes (Death, Hospitalization, Other)
  Sender: GENMAB
  Company Number: JP-GENMAB-2024-00246AA

PATIENT
  Age: 78 Year
  Sex: Male
  Weight: 50 kg

DRUGS (21)
  1. EPKINLY [Suspect]
     Active Substance: EPCORITAMAB-BYSP
     Indication: Diffuse large B-cell lymphoma
     Dosage: UNK, THE FIRST ADMINISTRATION IN CYCLE 1 TO THE SECOND ADMINISTRATION
     Route: 058
     Dates: start: 20231221
  2. EPKINLY [Suspect]
     Active Substance: EPCORITAMAB-BYSP
     Dosage: 48 MILLIGRAM, WEEKLY
     Route: 058
     Dates: start: 20240104, end: 20240111
  3. PREDONINE [Concomitant]
     Active Substance: PREDNISOLONE
     Indication: Prophylaxis
     Dosage: UNK, FROM THE FIRST ADMINISTRATION IN CYCLE 1 TO THE THIRD ADMINISTRATION
     Dates: start: 20231221, end: 202401
  4. PREDONINE [Concomitant]
     Active Substance: PREDNISOLONE
     Dosage: 100 MILLIGRAM, QD
     Route: 048
     Dates: start: 20240111, end: 20240111
  5. PREDONINE [Concomitant]
     Active Substance: PREDNISOLONE
     Dosage: 100 MILLIGRAM, QD, AFTER BREAKFAST, UNCLEAR WHETHER THE DOSE WAS TAKEN ACCORDING TO THE DOSING INSTR
     Route: 048
     Dates: start: 20240112, end: 20240114
  6. CALONAL [Concomitant]
     Active Substance: ACETAMINOPHEN
     Indication: Prophylaxis
     Dosage: UNK, FROM THE FIRST ADMINISTRATION IN CYCLE 1 TO THE THIRD ADMINISTRATION
     Route: 048
     Dates: start: 20231221, end: 202401
  7. CALONAL [Concomitant]
     Active Substance: ACETAMINOPHEN
     Dosage: 1000 MILLIGRAM, QD, TAKE 1 HOUR BEFORE ADMINISTRATION, AS DIRECTED BY A DOCTOR.
     Route: 048
     Dates: start: 20240111, end: 20240111
  8. DIPHENHYDRAMINE [Concomitant]
     Active Substance: DIPHENHYDRAMINE
     Indication: Prophylaxis
     Dosage: UNK, FROM THE FIRST ADMINISTRATION IN CYCLE 1 TO THE THIRD ADMINISTRATION
     Route: 048
     Dates: start: 20231221, end: 202401
  9. DIPHENHYDRAMINE [Concomitant]
     Active Substance: DIPHENHYDRAMINE
     Dosage: 50 MILLIGRAM, QD, TAKE 1 HOUR BEFORE ADMINISTRATION, AS DIRECTED BY A DOCTOR.
     Route: 048
     Dates: start: 20240111, end: 20240111
  10. REBAMIPIDE [Concomitant]
     Active Substance: REBAMIPIDE
     Dosage: 300 MILLIGRAM, TID, AFTER EVERY MEAL
     Dates: start: 20240111, end: 2024
  11. FEBUXOSTAT [Concomitant]
     Active Substance: FEBUXOSTAT
     Dosage: 20 MILLIGRAM, QD, AFTER DINNER
     Dates: start: 20240111, end: 2024
  12. SULFAMETHOXAZOLE\TRIMETHOPRIM [Concomitant]
     Active Substance: SULFAMETHOXAZOLE\TRIMETHOPRIM
     Dosage: UNK UNK, QD, AFTER BREAKFAST
     Dates: start: 20240111, end: 2024
  13. ICOSAPENT ETHYL [Concomitant]
     Active Substance: ICOSAPENT ETHYL
     Dosage: 1800 MILLIGRAM, BID, AFTER BREAKFAST AND DINNER
     Dates: start: 20240111, end: 2024
  14. VONOPRAZAN FUMARATE [Concomitant]
     Active Substance: VONOPRAZAN FUMARATE
     Dosage: 10 MILLIGRAM, QD, AFTER BREAKFAST
     Dates: start: 20240111, end: 2024
  15. BROTIZOLAM [Concomitant]
     Active Substance: BROTIZOLAM
     Dosage: 0.25 MILLIGRAM, QD, BEFORE GOING TO BED
     Dates: start: 20240111, end: 2024
  16. VALACYCLOVIR HYDROCHLORIDE [Concomitant]
     Active Substance: VALACYCLOVIR HYDROCHLORIDE
     Dosage: 500 MILLIGRAM, QD, AFTER BREAKFAST
     Dates: start: 20240111, end: 2024
  17. SYMPROIC [Concomitant]
     Active Substance: NALDEMEDINE
     Dosage: 0.2 MILLIGRAM, QD, BEFORE GOING TO BED
     Dates: start: 20240111, end: 2024
  18. TRAMADOL HYDROCHLORIDE [Concomitant]
     Active Substance: TRAMADOL HYDROCHLORIDE
     Dosage: 200 MILLIGRAM, QD, BEFORE GOING TO BED
     Dates: start: 20240111, end: 2024
  19. AMITIZA [Concomitant]
     Active Substance: LUBIPROSTONE
     Dosage: 24 MICROGRAM, BID, AFTER BREAKFAST AND DINNER
     Dates: start: 20240111, end: 2024
  20. ELOBIXIBAT [Concomitant]
     Active Substance: ELOBIXIBAT
     Dosage: 10 MILLIGRAM, QD, BEFORE GOING TO BED
     Dates: start: 20240111, end: 2024
  21. CILOSTAZOL [Concomitant]
     Active Substance: CILOSTAZOL
     Dosage: 200 MILLIGRAM, BID, AFTER BREAKFAST AND DINNER
     Route: 048
     Dates: start: 20240111, end: 20240118

REACTIONS (3)
  - Septic shock [Fatal]
  - Myelosuppression [Unknown]
  - Cytokine release syndrome [Recovering/Resolving]

NARRATIVE: CASE EVENT DATE: 20240118
